FAERS Safety Report 11197409 (Version 1)
Quarter: 2015Q2

REPORT INFORMATION
  Report Type: Spontaneous
  Country: DK (occurrence: US)
  Receive Date: 20150617
  Receipt Date: 20150617
  Transmission Date: 20150821
  Serious: Yes (Hospitalization)
  Sender: FDA-Public Use
  Company Number: US-FRI-1000076071

PATIENT
  Age: 56 Year
  Sex: Female

DRUGS (6)
  1. BLINDED INVESTIGATIONAL MEDICINAL PRODUCT (IMP) NON-PARTNER [Suspect]
     Active Substance: INVESTIGATIONAL PRODUCT
     Indication: MAJOR DEPRESSION
     Dosage: UNK
     Route: 048
     Dates: start: 20141217, end: 20150324
  2. LISINOPRIL. [Concomitant]
     Active Substance: LISINOPRIL
     Indication: HYPERTENSION
     Dosage: 10 MG MILLIGRAM(S), UNK
     Route: 048
     Dates: start: 2010
  3. BENADRYL [Concomitant]
     Active Substance: DIPHENHYDRAMINE HYDROCHLORIDE
     Indication: RASH
     Dosage: 25 MCG, UNK
     Route: 048
     Dates: start: 20150220
  4. LEVOTHYROXINE [Concomitant]
     Active Substance: LEVOTHYROXINE
     Indication: HYPOTHYROIDISM
     Dosage: 100 MCG, UNK
     Route: 048
     Dates: start: 2010
  5. ESCITALOPRAM [Suspect]
     Active Substance: ESCITALOPRAM OXALATE
     Indication: MAJOR DEPRESSION
     Dosage: 20 MG MILLIGRAM(S), UNK
     Route: 048
     Dates: start: 20141223
  6. AZELASTINE [Concomitant]
     Active Substance: AZELASTINE
     Indication: CONJUNCTIVITIS
     Dosage: 1 GTT DROP(S), UNK
     Route: 047
     Dates: start: 20150320

REACTIONS (2)
  - Kidney infection [Recovering/Resolving]
  - Urinary tract infection [None]

NARRATIVE: CASE EVENT DATE: 20150413
